FAERS Safety Report 6866492-3 (Version None)
Quarter: 2010Q3

REPORT INFORMATION
  Report Type: 
  Country: None (occurrence: None)
  Receive Date: 20100722
  Receipt Date: 20100712
  Transmission Date: 20110219
  Serious: Yes (Hospitalization, Other)
  Sender: FDA-Public Use
  Company Number: PHHY2010BR46285

PATIENT
  Sex: Female

DRUGS (8)
  1. DIOVAN [Suspect]
     Indication: HYPERTENSION
     Dosage: 1 TABLET (160 MG) DAILY
     Route: 048
  2. DIOVAN [Suspect]
     Dosage: 320 MG, UNK
     Route: 048
  3. ALDACTONE [Concomitant]
     Indication: HYPERTENSION
     Dosage: 1 TABLET (50 MG) DAILY
     Route: 048
  4. EFFEXOR [Concomitant]
     Indication: DEPRESSION
     Dosage: 1 TABLET DAILY
     Route: 048
  5. NPH INSULIN [Concomitant]
     Indication: DIABETES MELLITUS
     Dosage: 15 IU, UNK
     Route: 058
     Dates: start: 20100710
  6. ZOLPIDEM TARTRATE [Concomitant]
     Indication: INSOMNIA
     Dosage: 10 MG, UNK
     Route: 048
  7. VERAPAMIL [Concomitant]
     Indication: HYPERTENSION
     Dosage: UNK
     Route: 048
  8. METHYLDOPA [Concomitant]
     Indication: HYPERTENSION
     Dosage: 250 MG, BID
     Route: 048

REACTIONS (5)
  - AMNESIA [None]
  - DYSARTHRIA [None]
  - HYPERTENSION [None]
  - HYPERTENSIVE ENCEPHALOPATHY [None]
  - MEMORY IMPAIRMENT [None]
